FAERS Safety Report 5368204-1 (Version None)
Quarter: 2007Q2

REPORT INFORMATION
  Report Type: 
  Country: None (occurrence: None)
  Receive Date: 20070625
  Receipt Date: 20070620
  Transmission Date: 20071010
  Serious: Yes (Death)
  Sender: FDA-Public Use
  Company Number: PHBS2007IT08487

PATIENT
  Age: 82 Year
  Sex: Male

DRUGS (2)
  1. GLIBOMET [Suspect]
     Indication: DIABETES MELLITUS NON-INSULIN-DEPENDENT
     Dosage: 400 GLIBE - 2.5 METF MG/DAY
     Route: 048
     Dates: start: 20061203, end: 20070503
  2. VOLTAREN [Suspect]
     Indication: BONE PAIN
     Dosage: 75 MG/DAY
     Route: 030
     Dates: start: 20070430, end: 20070502

REACTIONS (18)
  - ALANINE AMINOTRANSFERASE INCREASED [None]
  - ANTIBODY TEST ABNORMAL [None]
  - ASPARTATE AMINOTRANSFERASE INCREASED [None]
  - BLOOD BILIRUBIN INCREASED [None]
  - COAGULATION TIME SHORTENED [None]
  - DUODENAL ULCER [None]
  - ENDOSCOPY ABNORMAL [None]
  - GASTRIC HAEMORRHAGE [None]
  - HEPATIC FAILURE [None]
  - HEPATIC NEOPLASM MALIGNANT [None]
  - HEPATITIS FULMINANT [None]
  - HEPATOMEGALY [None]
  - JAUNDICE [None]
  - NEOPLASM [None]
  - PULMONARY OEDEMA [None]
  - RENAL FAILURE [None]
  - SMALL INTESTINAL HAEMORRHAGE [None]
  - THROMBOCYTOPENIA [None]
